FAERS Safety Report 10656840 (Version 1)
Quarter: 2014Q4

REPORT INFORMATION
  Report Type: Spontaneous
  Country: US (occurrence: US)
  Receive Date: 20141217
  Receipt Date: 20141217
  Transmission Date: 20150529
  Serious: Yes (Hospitalization, Other)
  Sender: FDA-Public Use
  Company Number: US-PFIZER INC-2014340402

PATIENT
  Age: 49 Year
  Sex: Female
  Weight: 77.98 kg

DRUGS (7)
  1. LYRICA [Suspect]
     Active Substance: PREGABALIN
     Indication: MUSCLE SPASMS
  2. LYRICA [Suspect]
     Active Substance: PREGABALIN
     Indication: LIMB DISCOMFORT
  3. LYRICA [Suspect]
     Active Substance: PREGABALIN
     Indication: MUSCULOSKELETAL DISCOMFORT
  4. SOMA [Concomitant]
     Active Substance: CARISOPRODOL
     Dosage: 350 MG, UNK
  5. MORPHINE [Concomitant]
     Active Substance: MORPHINE
     Dosage: 15 MG, 3X/DAY (EVERY 8 HOURS)
  6. OXYCODONE [Concomitant]
     Active Substance: OXYCODONE
     Dosage: 10 MG, EVERY 6-8 HOURS
  7. LYRICA [Suspect]
     Active Substance: PREGABALIN
     Indication: PAIN IN EXTREMITY
     Dosage: 100 MG, 3X/DAY
     Route: 048
     Dates: start: 2010

REACTIONS (6)
  - Intracranial aneurysm [Recovered/Resolved with Sequelae]
  - Post procedural infection [Recovering/Resolving]
  - Abdominal discomfort [Unknown]
  - Coma [Recovered/Resolved]
  - Pyrexia [Recovering/Resolving]
  - Arthropathy [Unknown]

NARRATIVE: CASE EVENT DATE: 2010
